FAERS Safety Report 9318262 (Version 1)
Quarter: 2013Q2

REPORT INFORMATION
  Report Type: Spontaneous
  Country: US (occurrence: None)
  Receive Date: 20130529
  Receipt Date: 20130529
  Transmission Date: 20140414
  Serious: Yes (Other)
  Sender: FDA-Public Use
  Company Number: None

PATIENT
  Sex: 0

DRUGS (1)
  1. POLYMYXIN B [Suspect]
     Dosage: SMALL AMOUNT 1 TO 3 TIMES DAILY SKIN

REACTIONS (2)
  - Application site rash [None]
  - Product expiration date issue [None]
